FAERS Safety Report 8889724 (Version 1)
Quarter: 2012Q4

REPORT INFORMATION
  Report Type: 
  Country: JP (occurrence: JP)
  Receive Date: 20121107
  Receipt Date: 20121107
  Transmission Date: 20130627
  Serious: Yes (Other)
  Sender: FDA-Public Use
  Company Number: PHHY2012JP099537

PATIENT
  Age: 2 Year
  Sex: Male

DRUGS (6)
  1. PREDNISOLONE [Suspect]
     Indication: GRAFT VERSUS HOST DISEASE
     Dosage: 2 mg/kg/day
  2. PREDNISOLONE [Suspect]
     Dosage: 0.8 mg/kg/day
  3. METHOTREXATE [Suspect]
     Indication: GRAFT VERSUS HOST DISEASE
     Dosage: 10 mg/m2, (on day 28, 31, 35, 42, 51)
  4. ETOPOSIDE [Concomitant]
     Dosage: 60 mg/kg, UNK
  5. CYCLOPHOSPHAMIDE [Concomitant]
     Dosage: 60 mg/kg, UNK
  6. TACROLIMUS [Concomitant]

REACTIONS (13)
  - Renal failure [Recovering/Resolving]
  - Renal impairment [Recovering/Resolving]
  - Hydronephrosis [Recovering/Resolving]
  - Haematuria [Recovered/Resolved]
  - Lymphopenia [Recovering/Resolving]
  - Encephalitis [Recovering/Resolving]
  - Pyrexia [Recovered/Resolved]
  - Asthenia [Recovered/Resolved]
  - Cytotoxic oedema [Not Recovered/Not Resolved]
  - Adenovirus infection [Recovered/Resolved]
  - Haemorrhage [Not Recovered/Not Resolved]
  - Altered state of consciousness [Recovered/Resolved]
  - Incoherent [Unknown]
